FAERS Safety Report 10469061 (Version 3)
Quarter: 2014Q4

REPORT INFORMATION
  Report Type: Spontaneous
  Country: DE (occurrence: DE)
  Receive Date: 20140923
  Receipt Date: 20141015
  Transmission Date: 20150528
  Serious: Yes (Other)
  Sender: FDA-Public Use
  Company Number: DE-PFIZER INC-2014258022

PATIENT
  Age: 40 Year
  Sex: Female
  Weight: 77 kg

DRUGS (6)
  1. METHYLDOPA. [Concomitant]
     Active Substance: METHYLDOPA
     Indication: HYPERTENSION
     Dosage: 250 MG, 4X/DAY; 7.4. - 35.3. GESTATIONAL WEEK
     Route: 048
     Dates: start: 20130502, end: 20131113
  2. METFORMIN HCL [Suspect]
     Active Substance: METFORMIN HYDROCHLORIDE
     Indication: TYPE 2 DIABETES MELLITUS
     Dosage: 1000 MG, 2X/DAY; 0 - 6+4DAYS. GESTATIONAL WEEK
     Route: 048
     Dates: start: 20130310, end: 20130425
  3. JANUVIA [Suspect]
     Active Substance: SITAGLIPTIN PHOSPHATE
     Indication: TYPE 2 DIABETES MELLITUS
     Dosage: 100 MG, DAILY; 0. - 6+4DAYS. GESTATIONAL WEEK
     Route: 048
     Dates: start: 20130310, end: 20130425
  4. RAMIPRIL. [Suspect]
     Active Substance: RAMIPRIL
     Indication: HYPERTENSION
     Dosage: 10 MG, DAILY; 0. - 6+4DAY. GESTATIONAL WEEK
     Route: 048
     Dates: start: 20130310, end: 20130425
  5. METOPROLOL [Concomitant]
     Active Substance: METOPROLOL
     Indication: HYPERTENSION
     Dosage: 47.5 MG, 2X/DAY; 7.4. - 35.3. GESTATIONAL WEEK
     Route: 048
     Dates: start: 20130502, end: 20131113
  6. L-THYROXIN [Concomitant]
     Active Substance: LEVOTHYROXINE SODIUM
     Indication: AUTOIMMUNE THYROIDITIS
     Dosage: 75 UG, DAILY; 0. - 35.3. GESTATIONAL WEEK
     Route: 048
     Dates: start: 20130310, end: 20131113

REACTIONS (1)
  - Polyhydramnios [Unknown]
